FAERS Safety Report 5805564-9 (Version None)
Quarter: 2008Q3

REPORT INFORMATION
  Report Type: 
  Country: None (occurrence: None)
  Receive Date: 20080710
  Receipt Date: 20080630
  Transmission Date: 20090109
  Serious: Yes (Other)
  Sender: FDA-Public Use
  Company Number: CA-KINGPHARMUSA00001-K200800761

PATIENT

DRUGS (1)
  1. TAPAZOLE [Suspect]
     Indication: BASEDOW'S DISEASE

REACTIONS (3)
  - ANTI-NEUTROPHIL CYTOPLASMIC ANTIBODY POSITIVE VASCULITIS [None]
  - NASAL MUCOSAL DISORDER [None]
  - PURPURA [None]
